FAERS Safety Report 25755777 (Version 1)
Quarter: 2025Q3

REPORT INFORMATION
  Report Type: Spontaneous
  Country: CA (occurrence: CA)
  Receive Date: 20250903
  Receipt Date: 20250903
  Transmission Date: 20251021
  Serious: Yes (Other)
  Sender: NOVARTIS
  Company Number: CA-002147023-NVSC2025CA134225

PATIENT
  Age: 51 Year
  Sex: Male

DRUGS (8)
  1. IPTACOPAN [Suspect]
     Active Substance: IPTACOPAN
     Indication: Product used for unknown indication
     Route: 065
  2. SOLIRIS [Suspect]
     Active Substance: ECULIZUMAB
     Indication: Paroxysmal nocturnal haemoglobinuria
     Route: 042
  3. SOLIRIS [Suspect]
     Active Substance: ECULIZUMAB
     Route: 042
  4. SOLIRIS [Suspect]
     Active Substance: ECULIZUMAB
     Route: 042
  5. PENICILLIN V POTASSIUM [Concomitant]
     Active Substance: PENICILLIN V POTASSIUM
     Indication: Infection prophylaxis
     Route: 048
  6. FOLIC ACID [Concomitant]
     Active Substance: FOLIC ACID
     Indication: Product used for unknown indication
     Route: 048
  7. DEFERASIROX [Concomitant]
     Active Substance: DEFERASIROX
     Indication: Product used for unknown indication
     Route: 065
  8. Apl [Concomitant]
     Indication: Paroxysmal nocturnal haemoglobinuria
     Route: 065

REACTIONS (5)
  - Fatigue [Recovering/Resolving]
  - Haemoglobinuria [Recovering/Resolving]
  - Influenza like illness [Recovering/Resolving]
  - Intravascular haemolysis [Recovering/Resolving]
  - Malaise [Recovering/Resolving]
